FAERS Safety Report 4844256-X (Version None)
Quarter: 2005Q4

REPORT INFORMATION
  Report Type: 
  Country: None (occurrence: None)
  Receive Date: 20051202
  Receipt Date: 20050906
  Transmission Date: 20060501
  Serious: Yes (Hospitalization)
  Sender: FDA-Public Use
  Company Number: GB-MERCK-0509GBR00092

PATIENT
  Age: 58 Year
  Sex: Male
  Weight: 99 kg

DRUGS (12)
  1. VIOXX [Suspect]
     Indication: ARTHRITIS
     Route: 048
     Dates: start: 20000114, end: 20000701
  2. VIOXX [Suspect]
     Route: 065
     Dates: start: 20010801, end: 20030101
  3. VIOXX [Suspect]
     Route: 048
     Dates: start: 20000701, end: 20000701
  4. METHOTREXATE [Concomitant]
     Indication: PSORIASIS
     Route: 065
     Dates: start: 20000101
  5. FOLIC ACID [Concomitant]
     Route: 065
  6. GLUCOSAMINE [Concomitant]
     Route: 065
  7. ATENOLOL [Concomitant]
     Indication: BLOOD PRESSURE
     Route: 065
  8. AMLODIPINE BESYLATE [Concomitant]
     Indication: BLOOD PRESSURE
     Route: 065
  9. RAMIPRIL [Concomitant]
     Indication: BLOOD PRESSURE
     Route: 065
  10. SIMVASTATIN [Concomitant]
     Indication: BLOOD CHOLESTEROL
     Route: 065
  11. MISOPROSTOL AND NAPROXEN [Concomitant]
     Indication: PAIN
     Route: 065
  12. MISOPROSTOL AND NAPROXEN [Concomitant]
     Indication: INFLAMMATION
     Route: 065

REACTIONS (8)
  - ANGINA PECTORIS [None]
  - ATRIAL FIBRILLATION [None]
  - BLOOD PRESSURE INCREASED [None]
  - CORONARY ARTERY DISEASE [None]
  - CORONARY ARTERY OCCLUSION [None]
  - MITRAL VALVE INCOMPETENCE [None]
  - MYOCARDIAL INFARCTION [None]
  - TRICUSPID VALVE INCOMPETENCE [None]
